FAERS Safety Report 21840237 (Version 2)
Quarter: 2023Q2

REPORT INFORMATION
  Report Type: Report from Study
  Country: CN (occurrence: CN)
  Receive Date: 20230110
  Receipt Date: 20230407
  Transmission Date: 20230722
  Serious: Yes (Hospitalization)
  Sender: FDA-Public Use
  Company Number: CN-002147023-NVSC2020CN345923

PATIENT
  Age: 43 Year
  Sex: Male
  Weight: 70 kg

DRUGS (13)
  1. ENTRESTO [Suspect]
     Active Substance: SACUBITRIL\VALSARTAN
     Indication: Cardiac failure
     Dosage: 25 MG, BID
     Route: 048
     Dates: start: 20200608, end: 20210416
  2. ENTRESTO [Suspect]
     Active Substance: SACUBITRIL\VALSARTAN
     Dosage: 75 MG, BID
     Route: 048
     Dates: start: 20210417
  3. ENTRESTO [Suspect]
     Active Substance: SACUBITRIL\VALSARTAN
     Dosage: 25 MG, BID
     Route: 048
  4. METOPROLOL SUCCINATE [Concomitant]
     Active Substance: METOPROLOL SUCCINATE
     Indication: Cardiac failure
     Dosage: 75 MG, QD (SUSTAINED-RELEASE TABLETS)
     Route: 065
     Dates: start: 20200606, end: 2021
  5. METOPROLOL SUCCINATE [Concomitant]
     Active Substance: METOPROLOL SUCCINATE
     Dosage: 47.5 MG, QD (SUSTAINED-RELEASE TABLETS)
     Route: 065
  6. SPIRONOLACTONE [Concomitant]
     Active Substance: SPIRONOLACTONE
     Indication: Cardiac failure
     Dosage: 20 MG, QD
     Route: 065
     Dates: start: 20200606, end: 2021
  7. PRADAXA [Concomitant]
     Active Substance: DABIGATRAN ETEXILATE MESYLATE
     Indication: Atrial fibrillation
     Dosage: 110 MG, BID
     Route: 065
     Dates: start: 20200606, end: 2021
  8. FUROSEMIDE [Concomitant]
     Active Substance: FUROSEMIDE
     Indication: Cardiac failure
     Dosage: 20 MG, QD
     Route: 065
     Dates: start: 20201102, end: 20201107
  9. POTASSIUM CHLORIDE [Concomitant]
     Active Substance: POTASSIUM CHLORIDE
     Indication: Cardiac failure
     Dosage: 1 G, TID (SUSTAINED-RELEASE TABLETS)
     Route: 065
     Dates: start: 20201102, end: 2021
  10. MILRINONE [Concomitant]
     Active Substance: MILRINONE
     Indication: Cardiac failure
     Dosage: 25 MG, QD
     Route: 065
     Dates: start: 20201103, end: 20201105
  11. LANSOPRAZOLE [Concomitant]
     Active Substance: LANSOPRAZOLE
     Indication: Gastritis
     Dosage: 30 MG, QD
     Route: 065
     Dates: start: 20201103, end: 2021
  12. REBAMIPIDE [Concomitant]
     Active Substance: REBAMIPIDE
     Indication: Gastritis
     Dosage: 0.1 G, TID
     Route: 065
     Dates: start: 20201103, end: 2021
  13. DIGOXIN [Concomitant]
     Active Substance: DIGOXIN
     Indication: Cardiac failure
     Dosage: 0.125 MG, BID
     Route: 065
     Dates: start: 20201104, end: 2021

REACTIONS (10)
  - Cardiac failure [Recovered/Resolved]
  - Dyspnoea [Recovered/Resolved]
  - Cough [Recovered/Resolved]
  - Chest discomfort [Recovered/Resolved]
  - Left ventricular failure [Recovering/Resolving]
  - Chest discomfort [Recovering/Resolving]
  - Tachypnoea [Recovering/Resolving]
  - Cough [Recovering/Resolving]
  - Oedema peripheral [Recovering/Resolving]
  - Incorrect dosage administered [Unknown]

NARRATIVE: CASE EVENT DATE: 20201026
